FAERS Safety Report 8518433-0 (Version None)
Quarter: 2012Q3

REPORT INFORMATION
  Report Type: 
  Country: None (occurrence: None)
  Receive Date: 20120718
  Receipt Date: 20120229
  Transmission Date: 20120928
  Serious: No
  Sender: FDA-Public Use
  Company Number: US-BRISTOL-MYERS SQUIBB COMPANY-16425613

PATIENT
  Age: 63 Year
  Sex: Female

DRUGS (5)
  1. HYDROCODONE [Concomitant]
  2. LEVOXYL [Concomitant]
  3. TRAZODONE HCL [Concomitant]
  4. COUMADIN [Suspect]
     Dates: start: 20111201
  5. NEURONTIN [Concomitant]

REACTIONS (3)
  - ALOPECIA [None]
  - PRURITUS [None]
  - PAIN OF SKIN [None]
